FAERS Safety Report 16440002 (Version 1)
Quarter: 2019Q2

REPORT INFORMATION
  Report Type: Spontaneous
  Country: DE (occurrence: DE)
  Receive Date: 20190617
  Receipt Date: 20190617
  Transmission Date: 20190711
  Serious: Yes (Life-Threatening, Other)
  Sender: FDA-Public Use
  Company Number: DE-MYLANLABS-2018M1075548

PATIENT
  Age: 23 Year
  Sex: Female

DRUGS (4)
  1. EVEROLIMUS. [Suspect]
     Active Substance: EVEROLIMUS
     Indication: PROPHYLAXIS AGAINST TRANSPLANT REJECTION
  2. SORAFENIB [Suspect]
     Active Substance: SORAFENIB
     Indication: OSTEOSARCOMA
     Dosage: 400 MILLIGRAM, QD
     Route: 048
  3. PAZOPANIB [Suspect]
     Active Substance: PAZOPANIB
     Indication: OSTEOSARCOMA
     Dosage: 400 MILLIGRAM
     Route: 048
  4. EVEROLIMUS. [Suspect]
     Active Substance: EVEROLIMUS
     Indication: OSTEOSARCOMA
     Dosage: 5 MILLIGRAM
     Route: 048

REACTIONS (15)
  - Neuralgia [Unknown]
  - Palmar-plantar erythrodysaesthesia syndrome [Unknown]
  - Off label use [Unknown]
  - Neutropenia [Unknown]
  - Decreased appetite [Unknown]
  - Cardiac failure [Unknown]
  - Pancytopenia [Unknown]
  - Nausea [Unknown]
  - Metastases to abdominal wall [Unknown]
  - Bone pain [Unknown]
  - Malignant neoplasm progression [Unknown]
  - Fatigue [Unknown]
  - Thrombocytopenia [Unknown]
  - Osteosarcoma [Unknown]
  - Product use in unapproved indication [Unknown]
